FAERS Safety Report 13586619 (Version 1)
Quarter: 2017Q2

REPORT INFORMATION
  Report Type: Spontaneous
  Country: DK (occurrence: DK)
  Receive Date: 20170526
  Receipt Date: 20170526
  Transmission Date: 20170830
  Serious: Yes (Hospitalization)
  Sender: FDA-Public Use
  Company Number: DK-AMGEN-DNKSP2017076369

PATIENT
  Age: 59 Year
  Sex: Female

DRUGS (6)
  1. UNIKALK BASIC [Concomitant]
     Indication: CALCIUM DEFICIENCY
     Route: 048
     Dates: start: 20150209
  2. LETROZOL [Concomitant]
     Active Substance: LETROZOLE
     Indication: NEOPLASM MALIGNANT
     Route: 048
     Dates: start: 20150209
  3. PANODIL [Concomitant]
     Active Substance: ACETAMINOPHEN
     Indication: PAIN
     Route: 048
     Dates: start: 20170406
  4. XGEVA [Suspect]
     Active Substance: DENOSUMAB
     Indication: METASTASES TO BONE
     Dosage: STYRKE: 120 MG
     Route: 058
     Dates: start: 20150408
  5. BUDESONIDE. [Concomitant]
     Active Substance: BUDESONIDE
     Indication: LOEFFLER^S SYNDROME
     Route: 045
     Dates: start: 20130624
  6. PULMICORT TURBUHALER [Concomitant]
     Active Substance: BUDESONIDE
     Indication: ASTHMA
     Route: 055

REACTIONS (1)
  - Osteonecrosis of jaw [Not Recovered/Not Resolved]
